FAERS Safety Report 4389920-4 (Version None)
Quarter: 2004Q2

REPORT INFORMATION
  Report Type: 
  Country: None (occurrence: None)
  Receive Date: 20040630
  Receipt Date: 20040621
  Transmission Date: 20050107
  Serious: Yes (Hospitalization, Other)
  Sender: FDA-Public Use
  Company Number: 2004041659

PATIENT
  Sex: Male

DRUGS (2)
  1. PHENYTOIN SODIUM [Suspect]
     Indication: ILL-DEFINED DISORDER
     Dosage: 300 MG, ORAL
     Route: 048
  2. ERYTHROMYCIN [Concomitant]

REACTIONS (4)
  - ANTICONVULSANT DRUG LEVEL INCREASED [None]
  - LABORATORY TEST INTERFERENCE [None]
  - PROTEIN TOTAL DECREASED [None]
  - SKIN ULCER [None]
